FAERS Safety Report 5101308-7 (Version None)
Quarter: 2006Q3

REPORT INFORMATION
  Report Type: 
  Country: None (occurrence: None)
  Receive Date: 20060911
  Receipt Date: 20060905
  Transmission Date: 20061208
  Serious: Yes (Death, Other)
  Sender: FDA-Public Use
  Company Number: US-BRISTOL-MYERS SQUIBB COMPANY-13498662

PATIENT
  Age: 44 Year
  Sex: Female

DRUGS (1)
  1. MITOMYCIN [Suspect]
     Indication: PANCREATIC CARCINOMA RECURRENT
     Route: 033

REACTIONS (2)
  - ACUTE MYELOID LEUKAEMIA [None]
  - TREATMENT RELATED SECONDARY MALIGNANCY [None]
